FAERS Safety Report 9181674 (Version 1)
Quarter: 2013Q1

REPORT INFORMATION
  Report Type: Spontaneous
  Country: US (occurrence: None)
  Receive Date: 20130321
  Receipt Date: 20130321
  Transmission Date: 20140127
  Serious: Yes (Hospitalization)
  Sender: FDA-Public Use
  Company Number: None

PATIENT
  Age: 68 Year
  Sex: Male
  Weight: 121 kg

DRUGS (9)
  1. IOPAMIDOL [Suspect]
     Route: 040
     Dates: start: 20120605, end: 20120705
  2. TITOTROPIUM INHALER [Concomitant]
  3. POLYETHYLENE GLYCOL [Concomitant]
  4. ALBUTEROL [Concomitant]
  5. NEBULIZER [Concomitant]
  6. ENOXAPARIN [Concomitant]
  7. FLUTICASONE/SALMETEROL [Concomitant]
  8. INSULIN 70/30 [Concomitant]
  9. PANTOPRAZOLE [Concomitant]

REACTIONS (7)
  - Fall [None]
  - Multiple fractures [None]
  - Pain [None]
  - Lethargy [None]
  - Depressed level of consciousness [None]
  - Respiratory distress [None]
  - Renal failure [None]
